FAERS Safety Report 11265188 (Version 1)
Quarter: 2015Q3

REPORT INFORMATION
  Report Type: Spontaneous
  Country: PT (occurrence: PT)
  Receive Date: 20150713
  Receipt Date: 20150713
  Transmission Date: 20151125
  Serious: Yes (Life-Threatening)
  Sender: FDA-Public Use
  Company Number: PT-TEVA-576321ISR

PATIENT
  Age: 56 Year
  Sex: Female

DRUGS (1)
  1. OLFEN [Suspect]
     Active Substance: DICLOFENAC SODIUM
     Dosage: GASTRO-RESISTANT TABLET
     Route: 048
     Dates: start: 201207

REACTIONS (5)
  - Generalised erythema [Recovered/Resolved]
  - Anaphylactic reaction [Recovered/Resolved]
  - Pruritus [Recovered/Resolved]
  - Loss of consciousness [Recovered/Resolved]
  - Feeling hot [Recovered/Resolved]

NARRATIVE: CASE EVENT DATE: 201207
